FAERS Safety Report 4983375-4 (Version None)
Quarter: 2006Q2

REPORT INFORMATION
  Report Type: 
  Country: None (occurrence: None)
  Receive Date: 20060426
  Receipt Date: 20050926
  Transmission Date: 20061013
  Serious: Yes (Hospitalization, Disabling)
  Sender: FDA-Public Use
  Company Number: US-MERCK-0509USA03870

PATIENT
  Age: 58 Year
  Sex: Male
  Weight: 84 kg

DRUGS (8)
  1. VIOXX [Suspect]
     Indication: BACK DISORDER
     Route: 048
     Dates: start: 20030801, end: 20040801
  2. EFFEXOR [Concomitant]
     Route: 065
  3. LISINOPRIL [Concomitant]
     Route: 065
  4. ATIVAN [Concomitant]
     Route: 065
  5. BEXTRA [Suspect]
     Route: 065
  6. BACLOFEN [Concomitant]
     Route: 065
  7. PERCOCET [Concomitant]
     Route: 065
  8. ASPIRIN [Concomitant]
     Route: 065

REACTIONS (13)
  - ACUTE MYOCARDIAL INFARCTION [None]
  - ANGINA UNSTABLE [None]
  - CARDIAC DISORDER [None]
  - CONSTIPATION [None]
  - CORONARY ARTERY DISEASE [None]
  - CORONARY ARTERY OCCLUSION [None]
  - COUGH [None]
  - DYSPNOEA [None]
  - HYPERCHOLESTEROLAEMIA [None]
  - MYOCARDIAL ISCHAEMIA [None]
  - PNEUMONIA [None]
  - SINUSITIS [None]
  - VENTRICULAR HYPERTROPHY [None]
